FAERS Safety Report 16292066 (Version 2)
Quarter: 2019Q3

REPORT INFORMATION
  Report Type: Report from Study
  Country: US (occurrence: US)
  Receive Date: 20190509
  Receipt Date: 20190813
  Transmission Date: 20191004
  Serious: Yes (Hospitalization)
  Sender: FDA-Public Use
  Company Number: US-ALKERMES INC.-ALK-2018-002278

PATIENT
  Age: 34 Year
  Sex: Female

DRUGS (8)
  1. BLINDED PLACEBO [Suspect]
     Active Substance: INVESTIGATIONAL PRODUCT
     Dosage: UNK MG, QD
     Route: 048
     Dates: start: 20180227
  2. BLINDED BUPROPION [Suspect]
     Active Substance: BUPROPION
     Dosage: UNK MG, QD
     Route: 048
     Dates: start: 20180227
  3. VIVITROL [Suspect]
     Active Substance: NALTREXONE
     Dosage: UNK MG, QD
     Route: 048
     Dates: start: 20180227
  4. BLINDED PLACEBO [Suspect]
     Active Substance: INVESTIGATIONAL PRODUCT
     Indication: DRUG USE DISORDER
     Dosage: UNK MG, Q3WK
     Route: 030
     Dates: start: 20180227
  5. VIVITROL [Suspect]
     Active Substance: NALTREXONE
     Indication: DRUG USE DISORDER
     Dosage: UNK MG, Q3WK
     Route: 030
     Dates: start: 20180227
  6. AMOXICILLIN. [Concomitant]
     Active Substance: AMOXICILLIN
     Indication: PRODUCT USED FOR UNKNOWN INDICATION
     Dosage: UNK
  7. HYDROCODONE [Concomitant]
     Active Substance: HYDROCODONE
     Indication: PRODUCT USED FOR UNKNOWN INDICATION
  8. BLINDED BUPROPION [Suspect]
     Active Substance: BUPROPION
     Indication: DRUG USE DISORDER
     Dosage: UNK MG, Q3WK
     Route: 030
     Dates: start: 20180227

REACTIONS (1)
  - Appendicitis [Recovered/Resolved]

NARRATIVE: CASE EVENT DATE: 20180417
